FAERS Safety Report 18956637 (Version 3)
Quarter: 2021Q2

REPORT INFORMATION
  Report Type: Spontaneous
  Country: US (occurrence: US)
  Receive Date: 20210302
  Receipt Date: 20210421
  Transmission Date: 20210717
  Serious: Yes (Hospitalization, Other)
  Sender: FDA-Public Use
  Company Number: US-BIOGEN-2021BI00982563

PATIENT
  Age: 5 Year
  Sex: Male
  Weight: 12 kg

DRUGS (34)
  1. CULTURELLE KIDS (LACTOBACILLUS RHAMNOSUS) [Concomitant]
     Indication: PRODUCT USED FOR UNKNOWN INDICATION
     Dosage: 1 PACKET DAILY
     Route: 065
     Dates: start: 20180710
  2. APITEGROMAB. [Suspect]
     Active Substance: APITEGROMAB
     Route: 065
     Dates: start: 20190913
  3. APITEGROMAB. [Suspect]
     Active Substance: APITEGROMAB
     Route: 065
     Dates: start: 20200107
  4. APITEGROMAB. [Suspect]
     Active Substance: APITEGROMAB
     Route: 065
     Dates: start: 20201026
  5. ACETAMINOPHEN. [Concomitant]
     Active Substance: ACETAMINOPHEN
     Indication: PYREXIA
     Dosage: AS NEEDED
     Route: 065
     Dates: start: 20181016
  6. APITEGROMAB. [Suspect]
     Active Substance: APITEGROMAB
     Route: 065
     Dates: start: 20191206
  7. APITEGROMAB. [Suspect]
     Active Substance: APITEGROMAB
     Route: 065
     Dates: start: 20200709
  8. APITEGROMAB. [Suspect]
     Active Substance: APITEGROMAB
     Route: 065
     Dates: start: 20200826
  9. APITEGROMAB. [Suspect]
     Active Substance: APITEGROMAB
     Route: 065
     Dates: start: 20201216
  10. DECADRON [Concomitant]
     Active Substance: DEXAMETHASONE
     Indication: UPPER RESPIRATORY TRACT INFECTION
     Route: 048
     Dates: start: 20191212, end: 20191213
  11. APITEGROMAB. [Suspect]
     Active Substance: APITEGROMAB
     Indication: SPINAL MUSCULAR ATROPHY
     Route: 065
     Dates: start: 20190813
  12. APITEGROMAB. [Suspect]
     Active Substance: APITEGROMAB
     Route: 065
     Dates: start: 20200221
  13. MOTRIN [Concomitant]
     Active Substance: IBUPROFEN
     Indication: PAIN
     Dosage: AS NEEDED
     Route: 065
     Dates: start: 20181016
  14. MIRALAX [Concomitant]
     Active Substance: POLYETHYLENE GLYCOL 3350
     Indication: CONSTIPATION
     Dosage: AS NEEDED
     Route: 065
     Dates: start: 20171229
  15. SPINRAZA [Suspect]
     Active Substance: NUSINERSEN
     Indication: SPINAL MUSCULAR ATROPHY
     Route: 037
     Dates: start: 20190813
  16. SPINRAZA [Suspect]
     Active Substance: NUSINERSEN
     Route: 037
     Dates: start: 20191018, end: 20191018
  17. APITEGROMAB. [Suspect]
     Active Substance: APITEGROMAB
     Route: 065
     Dates: start: 20200131
  18. APITEGROMAB. [Suspect]
     Active Substance: APITEGROMAB
     Route: 065
     Dates: start: 20200805
  19. APITEGROMAB. [Suspect]
     Active Substance: APITEGROMAB
     Route: 065
     Dates: start: 20201124
  20. APITEGROMAB. [Suspect]
     Active Substance: APITEGROMAB
     Route: 065
     Dates: start: 20191104
  21. FLULAVAL VACCINE [Concomitant]
     Indication: ANTIVIRAL PROPHYLAXIS
     Route: 030
     Dates: start: 20201231, end: 20201231
  22. SPINRAZA [Suspect]
     Active Substance: NUSINERSEN
     Route: 037
     Dates: start: 20170728, end: 20170728
  23. SPINRAZA [Suspect]
     Active Substance: NUSINERSEN
     Route: 037
     Dates: start: 20200406, end: 20201218
  24. APITEGROMAB. [Suspect]
     Active Substance: APITEGROMAB
     Route: 065
     Dates: start: 20191010
  25. ACETAMINOPHEN. [Concomitant]
     Active Substance: ACETAMINOPHEN
     Dosage: AS NEEDED
     Route: 065
     Dates: start: 20191012, end: 20191015
  26. PULMICORT TURBUHALER [Concomitant]
     Active Substance: BUDESONIDE
     Indication: PNEUMONIA VIRAL
     Route: 065
     Dates: start: 20190508
  27. MELATONIN [Concomitant]
     Active Substance: MELATONIN
     Indication: PRODUCT USED FOR UNKNOWN INDICATION
     Route: 065
     Dates: start: 20190218
  28. APITEGROMAB. [Suspect]
     Active Substance: APITEGROMAB
     Route: 065
     Dates: start: 20200413
  29. APITEGROMAB. [Suspect]
     Active Substance: APITEGROMAB
     Route: 065
     Dates: start: 20200513
  30. APITEGROMAB. [Suspect]
     Active Substance: APITEGROMAB
     Route: 065
     Dates: start: 20200610
  31. APITEGROMAB. [Suspect]
     Active Substance: APITEGROMAB
     Route: 065
     Dates: start: 20200930
  32. SALBUTAMOL [Concomitant]
     Active Substance: ALBUTEROL
     Indication: PRODUCT USED FOR UNKNOWN INDICATION
     Route: 065
     Dates: start: 20190508
  33. TUMS KIDS (CALCIM CARBONATE) [Concomitant]
     Indication: PRODUCT USED FOR UNKNOWN INDICATION
     Route: 065
     Dates: start: 20181006
  34. SODIUM CHLORIDE. [Concomitant]
     Active Substance: SODIUM CHLORIDE
     Indication: INCREASED BRONCHIAL SECRETION
     Route: 065
     Dates: start: 20190107

REACTIONS (3)
  - Pneumonia [Recovered/Resolved]
  - Hypoglycaemia [Recovered/Resolved]
  - Metabolic acidosis [Recovered/Resolved]

NARRATIVE: CASE EVENT DATE: 20201226
